FAERS Safety Report 4647618-9 (Version None)
Quarter: 2005Q2

REPORT INFORMATION
  Report Type: 
  Country: None (occurrence: None)
  Receive Date: 20050426
  Receipt Date: 20050418
  Transmission Date: 20051028
  Serious: Yes (Other)
  Sender: FDA-Public Use
  Company Number: GBWYE595118APR05

PATIENT
  Age: 22 Year
  Sex: Female

DRUGS (3)
  1. TAZOCIN (PIPERACILLIN/TAZOBACTAM, INJECTION) [Suspect]
     Indication: INFECTION
     Dosage: 6.75G INTRAVENOUS
     Route: 042
     Dates: start: 20050324, end: 20050324
  2. TOBRAMYCIN [Suspect]
     Indication: INFECTION
     Dosage: 100MG INTRAVENOUS
     Route: 042
     Dates: start: 20050324
  3. CIPROFLOXACIN [Concomitant]

REACTIONS (3)
  - PARAESTHESIA ORAL [None]
  - PRURITUS [None]
  - RASH MACULO-PAPULAR [None]
